FAERS Safety Report 6739480-5 (Version None)
Quarter: 2010Q2

REPORT INFORMATION
  Report Type: 
  Country: None (occurrence: None)
  Receive Date: 20100525
  Receipt Date: 20100514
  Transmission Date: 20101027
  Serious: Yes (Other)
  Sender: FDA-Public Use
  Company Number: US-JNJFOC-20100507260

PATIENT
  Age: 11 Month
  Sex: Male
  Weight: 9.07 kg

DRUGS (2)
  1. PEPCID COMPLETE [Suspect]
     Route: 048
  2. PEPCID COMPLETE [Suspect]
     Indication: ACCIDENTAL EXPOSURE
     Dosage: 3 OR 4 CHEWABLE TABLETS
     Route: 048

REACTIONS (2)
  - ACCIDENTAL DRUG INTAKE BY CHILD [None]
  - ACCIDENTAL OVERDOSE [None]
